FAERS Safety Report 8086976-2 (Version None)
Quarter: 2012Q1

REPORT INFORMATION
  Report Type: 
  Country: None (occurrence: None)
  Receive Date: 20120128
  Receipt Date: 20110519
  Transmission Date: 20120608
  Serious: No
  Sender: FDA-Public Use
  Company Number: US-ABBOTT-11P-163-0727385-00

PATIENT
  Sex: Male
  Weight: 104.42 kg

DRUGS (11)
  1. ASCORBIC ACID [Concomitant]
     Indication: VITAMIN SUPPLEMENTATION
  2. ESTER C [Concomitant]
     Indication: SUPPLEMENTATION THERAPY
  3. VITAMIN B-12 [Concomitant]
     Indication: VITAMIN SUPPLEMENTATION
  4. KLONOPIN [Concomitant]
     Indication: ANXIETY
  5. HUMIRA [Suspect]
     Indication: CROHN'S DISEASE
     Route: 058
     Dates: start: 20110419, end: 20110419
  6. HUMIRA [Suspect]
     Dates: start: 20110503, end: 20110503
  7. HUMIRA [Suspect]
     Dates: start: 20110517
  8. IMURAN [Concomitant]
     Indication: CROHN'S DISEASE
  9. DEPAKOTE [Concomitant]
     Indication: CONVULSION
  10. OMEPRAZOLE [Concomitant]
     Indication: GASTROOESOPHAGEAL REFLUX DISEASE
  11. FISH OIL [Concomitant]
     Indication: SUPPLEMENTATION THERAPY

REACTIONS (1)
  - NAUSEA [None]
